FAERS Safety Report 4338045-2 (Version None)
Quarter: 2004Q1

REPORT INFORMATION
  Report Type: 
  Country: None (occurrence: None)
  Receive Date: 20040329
  Receipt Date: 20040123
  Transmission Date: 20041129
  Serious: No
  Sender: FDA-Public Use
  Company Number: US_0401100233

PATIENT
  Age: 5 Year
  Sex: Male
  Weight: 19 kg

DRUGS (3)
  1. STRATTERA [Suspect]
     Dosage: 18 MG/DAY
     Dates: start: 20040101, end: 20040101
  2. ALBUTEROL [Concomitant]
  3. INFLUENZA VACCINE [Concomitant]

REACTIONS (7)
  - CRYING [None]
  - DYSKINESIA [None]
  - HEADACHE [None]
  - NIGHTMARE [None]
  - PYREXIA [None]
  - SCREAMING [None]
  - SOMNOLENCE [None]
